FAERS Safety Report 7621220-9 (Version None)
Quarter: 2011Q3

REPORT INFORMATION
  Report Type: 
  Country: None (occurrence: None)
  Receive Date: 20110719
  Receipt Date: 20110706
  Transmission Date: 20111222
  Serious: Yes (Hospitalization)
  Sender: FDA-Public Use
  Company Number: NL-UCBSA-036639

PATIENT
  Age: 68 Year
  Sex: Male

DRUGS (2)
  1. CIMZIA [Suspect]
     Indication: RHEUMATOID ARTHRITIS
     Dosage: WEEK 0, 2 AND 4
     Route: 058
     Dates: start: 20110316, end: 20110101
  2. CIMZIA [Suspect]
     Route: 058
     Dates: start: 20110101, end: 20110524

REACTIONS (3)
  - PHARYNGITIS [None]
  - ABASIA [None]
  - MALAISE [None]
